FAERS Safety Report 5684814-6 (Version None)
Quarter: 2008Q1

REPORT INFORMATION
  Report Type: 
  Country: None (occurrence: None)
  Receive Date: 20080328
  Receipt Date: 20071025
  Transmission Date: 20080703
  Serious: No
  Sender: FDA-Public Use
  Company Number: US-BRISTOL-MYERS SQUIBB COMPANY-13935184

PATIENT
  Age: 53 Year
  Sex: Female

DRUGS (2)
  1. ERBITUX [Suspect]
     Indication: NEOPLASM MALIGNANT
     Route: 042
     Dates: start: 20070908, end: 20071015
  2. BENADRYL [Concomitant]
     Indication: PREMEDICATION

REACTIONS (2)
  - DYSPNOEA [None]
  - FLUSHING [None]
